FAERS Safety Report 13622776 (Version 6)
Quarter: 2017Q4

REPORT INFORMATION
  Report Type: Spontaneous
  Country: BR (occurrence: BR)
  Receive Date: 20170607
  Receipt Date: 20171009
  Transmission Date: 20180320
  Serious: Yes (Death, Other)
  Sender: FDA-Public Use
  Company Number: BR-ABBVIE-17P-020-1999749-00

PATIENT
  Sex: Male
  Weight: 90 kg

DRUGS (6)
  1. HIDANTAL [Concomitant]
     Active Substance: PHENYTOIN SODIUM
     Indication: EPILEPSY
     Dosage: ROUTE OF ADMINISTRATION: NASOGASTRIC TUBE?IN THE MORNING/AT NIGHT
  2. GARDENAL [Concomitant]
     Active Substance: PHENOBARBITAL
     Indication: EPILEPSY
     Dosage: ROUTE OF ADMINISTRATION: NASOGASTRIC TUBE?IN THE MORNING/AT NIGHT
  3. DEPAKENE [Suspect]
     Active Substance: VALPROIC ACID
     Indication: EPILEPSY
     Dosage: IN THE MORNING/AT THE AFTERNOON/AT NIGHT
     Route: 065
  4. DEPAKOTE ER [Suspect]
     Active Substance: DIVALPROEX SODIUM
     Indication: EPILEPSY
     Dosage: IN THE MORNING/AT THE AFTERNOON/AT NIGHT
     Route: 048
  5. DEPAKOTE ER [Suspect]
     Active Substance: DIVALPROEX SODIUM
     Dosage: ROUTE OF ADMINISTRATION: NASOGASTRIC TUBE
     Route: 050
  6. DEPAKENE [Suspect]
     Active Substance: VALPROIC ACID
     Dosage: IN THE MORNING/AT THE AFTERNOON/AT NIGHT (VIA CATHETER)
     Route: 065

REACTIONS (4)
  - Pneumonia [Fatal]
  - Off label use [Unknown]
  - Gastrostomy [Fatal]
  - Product use issue [Unknown]
